FAERS Safety Report 15611200 (Version 1)
Quarter: 2018Q4

REPORT INFORMATION
  Report Type: Spontaneous
  Country: CZ (occurrence: CZ)
  Receive Date: 20181113
  Receipt Date: 20181113
  Transmission Date: 20190205
  Serious: Yes (Other)
  Sender: FDA-Public Use
  Company Number: CZ-ACCORD-091489

PATIENT
  Age: 22 Year

DRUGS (6)
  1. DEXAMETHASONE. [Suspect]
     Active Substance: DEXAMETHASONE
     Indication: BLASTIC PLASMACYTOID DENDRITIC CELL NEOPLASIA
     Dosage: PROPHYLACTIC INTRATHECAL APPLICATION OF CHEMOTHERAPY
     Route: 037
     Dates: start: 201506
  2. CYTARABINE/CYTARABINE HYDROCHLORIDE/CYTARABINE OCFOSFATE [Suspect]
     Active Substance: CYTARABINE
     Indication: BLASTIC PLASMACYTOID DENDRITIC CELL NEOPLASIA
     Dosage: PROPHYLACTIC INTRATHECAL APPLICATION OF CHEMOTHERAPY
     Route: 037
     Dates: start: 201506
  3. METHOTREXATE. [Suspect]
     Active Substance: METHOTREXATE
     Indication: BLASTIC PLASMACYTOID DENDRITIC CELL NEOPLASIA
     Dosage: PROPHYLACTIC INTRATHECAL APPLICATION OF CHEMOTHERAPY
     Route: 037
     Dates: start: 201506
  4. VINDESINE/VINDESINE SULFATE [Suspect]
     Active Substance: VINDESINE
     Indication: BLASTIC PLASMACYTOID DENDRITIC CELL NEOPLASIA
     Dosage: INDUCTION CHEMOTHERAPY
     Dates: start: 201506
  5. ETOPOSIDE. [Suspect]
     Active Substance: ETOPOSIDE
     Indication: BLASTIC PLASMACYTOID DENDRITIC CELL NEOPLASIA
     Dates: start: 201506
  6. DEXAMETHASONE. [Suspect]
     Active Substance: DEXAMETHASONE
     Indication: BLASTIC PLASMACYTOID DENDRITIC CELL NEOPLASIA
     Dosage: INDUCTION CHEMOTHERAPY
     Dates: start: 201506

REACTIONS (2)
  - Stomatitis [Unknown]
  - Odynophagia [Unknown]

NARRATIVE: CASE EVENT DATE: 201506
